FAERS Safety Report 7597994-2 (Version None)
Quarter: 2011Q3

REPORT INFORMATION
  Report Type: 
  Country: None (occurrence: None)
  Receive Date: 20110708
  Receipt Date: 20110701
  Transmission Date: 20111222
  Serious: Yes (Hospitalization)
  Sender: FDA-Public Use
  Company Number: US-PFIZER INC-2011140167

PATIENT
  Sex: Female
  Weight: 111.11 kg

DRUGS (3)
  1. CELECOXIB [Suspect]
     Indication: OSTEOARTHRITIS
     Dosage: 100 MG, 2X/DAY
     Route: 048
     Dates: start: 20080913, end: 20100901
  2. NEXIUM [Concomitant]
     Indication: PROPHYLAXIS
     Dosage: 40 MG, 1X/DAY
     Route: 048
     Dates: start: 20080913
  3. CELECOXIB [Suspect]
     Indication: RHEUMATOID ARTHRITIS

REACTIONS (2)
  - CORONARY ARTERY DISEASE [None]
  - SPINAL FRACTURE [None]
